FAERS Safety Report 20952545 (Version 1)
Quarter: 2022Q2

REPORT INFORMATION
  Report Type: Report from Study
  Country: ES (occurrence: ES)
  Receive Date: 20220613
  Receipt Date: 20220613
  Transmission Date: 20220721
  Serious: Yes (Other)
  Sender: FDA-Public Use
  Company Number: ES-SA-2022SA212222

PATIENT
  Sex: Female

DRUGS (2)
  1. DOCETAXEL [Suspect]
     Active Substance: DOCETAXEL
     Indication: Breast cancer metastatic
     Dosage: 75 MG/M2 AS A 60 MIN IV INFUSION
     Route: 042
  2. EPIRUBICIN HYDROCHLORIDE [Suspect]
     Active Substance: EPIRUBICIN HYDROCHLORIDE
     Indication: Breast cancer metastatic
     Dosage: 75 MG/M2 OF EPIRUBICIN (FARMORUBICINE) ON DAY 1 ADMINISTERED AS A 15-MIN INTRAVENOUS (I.V.) INFUSION
     Route: 042

REACTIONS (2)
  - Electrocardiogram abnormal [Unknown]
  - Cardiotoxicity [Unknown]
